FAERS Safety Report 9224625 (Version 2)
Quarter: 2013Q2

REPORT INFORMATION
  Report Type: Spontaneous
  Country: RU (occurrence: RU)
  Receive Date: 20130411
  Receipt Date: 20130520
  Transmission Date: 20140414
  Serious: Yes (Death, Life-Threatening, Hospitalization, Other)
  Sender: FDA-Public Use
  Company Number: RU-009507513-1304RUS003759

PATIENT
  Age: 52 Year
  Sex: Female

DRUGS (4)
  1. INEGY [Suspect]
     Indication: DYSLIPIDAEMIA
     Dosage: UNK
     Route: 048
     Dates: start: 20120428, end: 20120705
  2. ATORVASTATIN [Suspect]
  3. PRESTARIUM (PERINDOPRIL ARGININE) [Suspect]
  4. ASPIRIN [Suspect]

REACTIONS (12)
  - Myocardial ischaemia [Fatal]
  - Angina pectoris [Fatal]
  - Atrial fibrillation [Unknown]
  - Blood cholesterol decreased [Unknown]
  - Pain in extremity [Unknown]
  - Tremor [Unknown]
  - Tooth extraction [Unknown]
  - Loss of consciousness [Unknown]
  - Asthenia [Unknown]
  - Injury [Unknown]
  - Fall [Unknown]
  - Bradycardia [Recovering/Resolving]
